FAERS Safety Report 12675821 (Version 1)
Quarter: 2016Q3

REPORT INFORMATION
  Report Type: Spontaneous
  Country: US (occurrence: US)
  Receive Date: 20160823
  Receipt Date: 20160823
  Transmission Date: 20161109
  Serious: No
  Sender: FDA-Public Use
  Company Number: US-JAZZ-2016-US-006732

PATIENT
  Sex: Male

DRUGS (26)
  1. GABAPENTIN. [Concomitant]
     Active Substance: GABAPENTIN
  2. AVONEX [Concomitant]
     Active Substance: INTERFERON BETA-1A
  3. N-ACETYL-L-CYSTEINE [Concomitant]
     Active Substance: ACETYLCYSTEINE
  4. VITAMIN B12 [Concomitant]
     Active Substance: CYANOCOBALAMIN
  5. PERCOCET [Concomitant]
     Active Substance: ACETAMINOPHEN\OXYCODONE HYDROCHLORIDE
  6. ACIDOPHILUS [Concomitant]
     Active Substance: LACTOBACILLUS ACIDOPHILUS
  7. COENZYME Q10 [Concomitant]
     Active Substance: UBIDECARENONE
  8. ALPHA LIPOIC ACID [Concomitant]
     Active Substance: .ALPHA.-LIPOIC ACID
  9. GLUTATHIONE [Concomitant]
     Active Substance: GLUTATHIONE
  10. XYREM [Suspect]
     Active Substance: SODIUM OXYBATE
     Dosage: 1.5 G, QD
     Route: 048
     Dates: start: 201212, end: 2016
  11. BUSPAR [Concomitant]
     Active Substance: BUSPIRONE HYDROCHLORIDE
  12. VITAMIN B-6 [Concomitant]
     Active Substance: PYRIDOXINE
  13. XYREM [Suspect]
     Active Substance: SODIUM OXYBATE
     Indication: PRODUCT USED FOR UNKNOWN INDICATION
     Dosage: 3 G, BID
     Route: 048
     Dates: start: 200906, end: 201212
  14. OXYCODONE HYDROCHLORIDE. [Concomitant]
     Active Substance: OXYCODONE HYDROCHLORIDE
  15. RESVERATROL PLUS [Concomitant]
  16. VITAMIN D [Concomitant]
     Active Substance: CHOLECALCIFEROL
  17. CLONAZEPAM. [Concomitant]
     Active Substance: CLONAZEPAM
  18. MULTIVITAMINS [Concomitant]
     Active Substance: VITAMINS
  19. CYANOCOBALAMIN. [Concomitant]
     Active Substance: CYANOCOBALAMIN
  20. PANTOTHENIC ACID [Concomitant]
     Active Substance: PANTOTHENIC ACID
  21. TECFIDERA [Concomitant]
     Active Substance: DIMETHYL FUMARATE
  22. NEURONTIN [Concomitant]
     Active Substance: GABAPENTIN
  23. OMEGA 3 FISH OIL [Concomitant]
     Active Substance: FISH OIL\OMEGA-3 FATTY ACIDS
  24. QUERCETIN DIHYDRATE [Concomitant]
  25. XYREM [Suspect]
     Active Substance: SODIUM OXYBATE
     Dosage: 3 G, QD
     Route: 048
     Dates: start: 2016
  26. AMBIEN [Concomitant]
     Active Substance: ZOLPIDEM TARTRATE

REACTIONS (2)
  - Drug ineffective [Unknown]
  - Inappropriate schedule of drug administration [Unknown]
